FAERS Safety Report 6249676-7 (Version None)
Quarter: 2009Q2

REPORT INFORMATION
  Report Type: 
  Country: None (occurrence: None)
  Receive Date: 20090629
  Receipt Date: 20090619
  Transmission Date: 20091009
  Serious: Yes (Hospitalization)
  Sender: FDA-Public Use
  Company Number: ES-AVENTIS-200913648EU

PATIENT
  Age: 63 Year
  Sex: Male

DRUGS (2)
  1. SEGURIL                            /00032601/ [Suspect]
     Route: 048
     Dates: start: 20080101, end: 20081207
  2. ALDACTONE [Suspect]
     Route: 048
     Dates: start: 20080101, end: 20081207

REACTIONS (2)
  - DRUG INTERACTION [None]
  - HEPATIC ENCEPHALOPATHY [None]
